FAERS Safety Report 15384249 (Version 1)
Quarter: 2018Q3

REPORT INFORMATION
  Report Type: Spontaneous
  Country: JP (occurrence: JP)
  Receive Date: 20180914
  Receipt Date: 20180914
  Transmission Date: 20181010
  Serious: Yes (Hospitalization)
  Sender: FDA-Public Use
  Company Number: JP-EDENBRIDGE PHARMACEUTICALS, LLC-JP-2018EDE000265

PATIENT
  Age: 40 Year
  Sex: Female

DRUGS (13)
  1. VINCRISTINE SULFATE. [Concomitant]
     Active Substance: VINCRISTINE SULFATE
     Indication: THYMOMA
     Dosage: 0.75 MG, (4 CYCLES)
  2. PREDNISOLONE SODIUM PHOSPHATE. [Suspect]
     Active Substance: PREDNISOLONE SODIUM PHOSPHATE
     Indication: THYMOMA
     Dosage: 15 MG, QD
  3. TACROLIMUS. [Suspect]
     Active Substance: TACROLIMUS
     Indication: MYASTHENIA GRAVIS
     Dosage: 0.5 MG, QD
  4. CYCLOPHOSPHAMIDE. [Concomitant]
     Active Substance: CYCLOPHOSPHAMIDE
     Indication: MYASTHENIA GRAVIS
  5. CISPLATIN. [Concomitant]
     Active Substance: CISPLATIN
     Indication: THYMOMA
     Dosage: 65 MG, (4 CYCLES)
  6. PREDNISOLONE SODIUM PHOSPHATE. [Suspect]
     Active Substance: PREDNISOLONE SODIUM PHOSPHATE
     Indication: MYASTHENIA GRAVIS
     Dosage: 7 MG, QD
  7. TACROLIMUS. [Suspect]
     Active Substance: TACROLIMUS
     Indication: THYMOMA
     Dosage: 1.5 MG, QD
  8. CISPLATIN. [Concomitant]
     Active Substance: CISPLATIN
     Indication: MYASTHENIA GRAVIS
  9. TS?1 [Suspect]
     Active Substance: GIMERACIL\OTERACIL\TEGAFUR
     Indication: THYMOMA
     Dosage: 100 MG, FOR 14 DAYS EVERY 3 WEEKS
     Route: 048
  10. DOXORUBICIN [Concomitant]
     Active Substance: DOXORUBICIN
     Indication: MYASTHENIA GRAVIS
  11. CYCLOPHOSPHAMIDE. [Concomitant]
     Active Substance: CYCLOPHOSPHAMIDE
     Indication: THYMOMA
     Dosage: 920 MG, (4 CYCLES)
  12. DOXORUBICIN [Concomitant]
     Active Substance: DOXORUBICIN
     Indication: THYMOMA
     Dosage: 52 MG, (4 CYCLES)
  13. VINCRISTINE SULFATE. [Concomitant]
     Active Substance: VINCRISTINE SULFATE
     Indication: MYASTHENIA GRAVIS

REACTIONS (2)
  - Aplasia pure red cell [Recovering/Resolving]
  - Lymphocytosis [Not Recovered/Not Resolved]
